FAERS Safety Report 5345414-0 (Version None)
Quarter: 2007Q2

REPORT INFORMATION
  Report Type: 
  Country: None (occurrence: None)
  Receive Date: 20070430
  Receipt Date: 20060922
  Transmission Date: 20071010
  Serious: Yes (Other)
  Sender: FDA-Public Use
  Company Number: HQWYE318128SEP06

PATIENT
  Age: 63 Year
  Sex: Female
  Weight: 107.14 kg

DRUGS (5)
  1. ADVIL ALLERGY SINUS [Suspect]
     Dosage: 1 TABLET 1X PER 1 DAY, ORAL
     Route: 048
     Dates: start: 20060101, end: 20060101
  2. POTASSIUM (POTASSIUM) [Concomitant]
  3. ACCUPRIL [Concomitant]
  4. UNSPECIFIED DIURETIC (UNSPECIFIED DIURETIC) [Concomitant]
  5. COUMADIN [Concomitant]

REACTIONS (1)
  - RENAL PAIN [None]
